FAERS Safety Report 21212486 (Version 1)
Quarter: 2022Q3

REPORT INFORMATION
  Report Type: Spontaneous
  Country: US (occurrence: None)
  Receive Date: 20220812
  Receipt Date: 20220812
  Transmission Date: 20221026
  Serious: Yes (Disabling)
  Sender: FDA-Public Use
  Company Number: None

PATIENT
  Age: 77 Year
  Sex: Female
  Weight: 63 kg

DRUGS (11)
  1. ALEVE [Suspect]
     Active Substance: NAPROXEN SODIUM
     Indication: Arthralgia
     Dosage: OTHER QUANTITY : 1 TABLET(S);?FREQUENCY : DAILY;?
     Route: 048
     Dates: start: 20130401, end: 20160401
  2. ELIQUIS [Concomitant]
     Active Substance: APIXABAN
  3. AMLODIPINE [Concomitant]
     Active Substance: AMLODIPINE BESYLATE
  4. COREG [Concomitant]
     Active Substance: CARVEDILOL
  5. CRESTOR [Concomitant]
     Active Substance: ROSUVASTATIN CALCIUM
  6. MONTELUKAST [Concomitant]
     Active Substance: MONTELUKAST SODIUM
  7. VITAMINS [Concomitant]
     Active Substance: VITAMINS
  8. VITAMIN C [Concomitant]
     Active Substance: ASCORBIC ACID
  9. IRON [Concomitant]
     Active Substance: IRON
  10. VITAMIN D [Concomitant]
     Active Substance: VITAMIN D NOS
  11. PEPCID [Concomitant]
     Active Substance: FAMOTIDINE

REACTIONS (4)
  - Chronic kidney disease [None]
  - Peripheral swelling [None]
  - Dialysis [None]
  - Cerebrovascular accident [None]

NARRATIVE: CASE EVENT DATE: 20160401
